FAERS Safety Report 6687302-3 (Version None)
Quarter: 2010Q2

REPORT INFORMATION
  Report Type: 
  Country: None (occurrence: None)
  Receive Date: 20100419
  Receipt Date: 20100408
  Transmission Date: 20101027
  Serious: Yes (Death)
  Sender: FDA-Public Use
  Company Number: DE-AMGEN-US405761

PATIENT
  Sex: Male
  Weight: 86 kg

DRUGS (9)
  1. ENBREL [Suspect]
     Indication: RHEUMATOID ARTHRITIS
     Route: 058
     Dates: start: 20080409, end: 20090401
  2. VALORON N [Concomitant]
     Indication: RHEUMATOID ARTHRITIS
     Dosage: 50MG / 4MG 2 TIMES PER ONE DAY
     Route: 048
     Dates: start: 20080301
  3. DECORTIN-H [Concomitant]
     Indication: RHEUMATOID ARTHRITIS
     Dosage: 15 MG IN THE MORNING AND 5 MG IN THE EVENING
     Route: 048
     Dates: start: 20000201, end: 20080501
  4. DECORTIN-H [Concomitant]
     Dosage: 15 MG PER DAY
     Route: 048
     Dates: start: 20080501, end: 20080801
  5. DECORTIN-H [Concomitant]
     Route: 048
     Dates: start: 20080801, end: 20080901
  6. DECORTIN-H [Concomitant]
     Dosage: ALTERNATING 7.5 MG PER DAY AND 5 MG PER DAY
     Route: 048
     Dates: start: 20080901
  7. DIPYRONE TAB [Concomitant]
     Indication: RHEUMATOID ARTHRITIS
     Route: 048
     Dates: start: 20080301
  8. METHOTREXATE [Concomitant]
     Indication: RHEUMATOID ARTHRITIS
     Dosage: 10 MG PER WEEK
     Route: 058
     Dates: start: 19991101
  9. QUENSYL [Concomitant]
     Indication: RHEUMATOID ARTHRITIS
     Route: 048
     Dates: start: 20080301

REACTIONS (1)
  - BRONCHIAL CARCINOMA [None]
